FAERS Safety Report 23246968 (Version 1)
Quarter: 2023Q4

REPORT INFORMATION
  Report Type: Spontaneous
  Country: CN (occurrence: CN)
  Receive Date: 20231130
  Receipt Date: 20231130
  Transmission Date: 20240109
  Serious: Yes (Other)
  Sender: FDA-Public Use
  Company Number: CN-PFIZER INC-PV202300193192

PATIENT
  Age: 27 Year
  Sex: Female
  Weight: 82 kg

DRUGS (2)
  1. CARBOPROST TROMETHAMINE [Suspect]
     Active Substance: CARBOPROST TROMETHAMINE
     Indication: Uterine hypotonus
     Dosage: 1.000 ML, 6X/DAY
     Route: 030
     Dates: start: 20231111, end: 20231111
  2. CARBETOCIN [Concomitant]
     Active Substance: CARBETOCIN
     Indication: Uterine hypotonus
     Dosage: 1.000000 ML, 1X/DAY
     Route: 042
     Dates: start: 20231111, end: 20231111

REACTIONS (4)
  - Abdominal pain upper [Recovering/Resolving]
  - Nausea [Recovering/Resolving]
  - Vomiting [Recovering/Resolving]
  - Diarrhoea [Recovering/Resolving]

NARRATIVE: CASE EVENT DATE: 20231111
